FAERS Safety Report 4771315-2 (Version None)
Quarter: 2005Q3

REPORT INFORMATION
  Report Type: 
  Country: None (occurrence: None)
  Receive Date: 20050914
  Receipt Date: 20050830
  Transmission Date: 20060218
  Serious: Yes (Other)
  Sender: FDA-Public Use
  Company Number: USA0508106875

PATIENT
  Age: 85 Year
  Sex: Female

DRUGS (1)
  1. FORTEO [Suspect]
     Dates: start: 20040201

REACTIONS (8)
  - ARTHRALGIA [None]
  - BONE PAIN [None]
  - NEUROPATHY PERIPHERAL [None]
  - PHARMACEUTICAL PRODUCT COMPLAINT [None]
  - RASH GENERALISED [None]
  - RASH PRURITIC [None]
  - SKIN EXFOLIATION [None]
  - WHEELCHAIR USER [None]
